FAERS Safety Report 23921985 (Version 1)
Quarter: 2024Q2

REPORT INFORMATION
  Report Type: Spontaneous
  Country: FR (occurrence: FR)
  Receive Date: 20240531
  Receipt Date: 20240531
  Transmission Date: 20240716
  Serious: Yes (Other)
  Sender: FDA-Public Use
  Company Number: FR-ETHYPHARM-2024001236

PATIENT
  Sex: Male

DRUGS (3)
  1. BUPRENORPHINE [Suspect]
     Active Substance: BUPRENORPHINE
     Indication: Product used for unknown indication
     Dosage: UNK
     Route: 065
     Dates: end: 202405
  2. TRAMADOL [Suspect]
     Active Substance: TRAMADOL\TRAMADOL HYDROCHLORIDE
     Indication: Product used for unknown indication
     Dosage: 600 MILLIGRAM
     Route: 065
     Dates: end: 202405
  3. PAROXETINE HYDROCHLORIDE [Concomitant]
     Active Substance: PAROXETINE HYDROCHLORIDE\PAROXETINE HYDROCHLORIDE ANHYDROUS
     Indication: Product used for unknown indication
     Dosage: 20 MILLIGRAM, ONCE A DAY
     Route: 065
     Dates: end: 20240505

REACTIONS (14)
  - Drug dependence [Unknown]
  - Overdose [Unknown]
  - Confusional state [Unknown]
  - Dysgeusia [Unknown]
  - Decreased appetite [Unknown]
  - Drug diversion [Unknown]
  - Dizziness [Unknown]
  - Hyperhidrosis [Unknown]
  - Euphoric mood [Unknown]
  - Feeling cold [Unknown]
  - Malaise [Unknown]
  - Nausea [Unknown]
  - Withdrawal syndrome [Unknown]
  - Weight decreased [Unknown]

NARRATIVE: CASE EVENT DATE: 20240401
